FAERS Safety Report 7469827-6 (Version None)
Quarter: 2011Q2

REPORT INFORMATION
  Report Type: 
  Country: None (occurrence: None)
  Receive Date: 20110510
  Receipt Date: 20110427
  Transmission Date: 20111010
  Serious: Yes (Hospitalization)
  Sender: FDA-Public Use
  Company Number: SE-CELGENEUS-150-C5013-08051473

PATIENT
  Sex: Male
  Weight: 67.3 kg

DRUGS (18)
  1. OXAZEPAM [Concomitant]
     Indication: SEDATIVE THERAPY
     Route: 048
     Dates: start: 20080309
  2. LAKTULOS [Concomitant]
     Route: 048
     Dates: start: 20080327
  3. LOSARTAN [Concomitant]
     Indication: CARDIAC REHABILITATION THERAPY
     Route: 048
     Dates: start: 20080414
  4. OXICODON [Concomitant]
     Route: 048
     Dates: start: 20080301
  5. MAGNESIUM HYDROXID [Concomitant]
     Indication: MAGNESIUM DEFICIENCY
     Route: 048
     Dates: start: 20080319
  6. COCCILANA EXTRACT [Concomitant]
     Indication: ANTITUSSIVE THERAPY
     Route: 048
     Dates: start: 20080411
  7. BISOPROLOL [Concomitant]
     Indication: CARDIAC REHABILITATION THERAPY
     Route: 048
     Dates: start: 20061212
  8. ZOPLIKON [Concomitant]
     Route: 048
     Dates: start: 20061205
  9. POTASSIUM CHLORIDE [Concomitant]
     Route: 048
     Dates: start: 20080324
  10. FUROSEMID [Concomitant]
     Indication: DIURETIC THERAPY
     Route: 048
     Dates: start: 20061212
  11. CIPROFLOXACIN [Concomitant]
     Route: 048
     Dates: start: 20080504
  12. LENALIDOMIDE [Suspect]
     Indication: MULTIPLE MYELOMA
     Dosage: 10 MILLIGRAM
     Route: 048
     Dates: start: 20080512, end: 20080526
  13. ACETYL SALICYLIC ACID USP BAT [Concomitant]
     Indication: ANTICOAGULANT THERAPY
     Route: 048
     Dates: start: 20061201
  14. MELPHALAN HYDROCHLORIDE [Suspect]
     Indication: MULTIPLE MYELOMA
     Dosage: 14 MILLIGRAM
     Route: 048
     Dates: start: 20080512, end: 20080515
  15. PREDNISONE [Suspect]
     Indication: MULTIPLE MYELOMA
     Dosage: 151 MILLIGRAM
     Route: 048
     Dates: start: 20080512, end: 20080515
  16. PAMIDRON SYRA [Concomitant]
     Indication: OSTEOPOROSIS
     Route: 051
     Dates: start: 20080316
  17. ACETAMINOPHEN [Concomitant]
     Route: 048
     Dates: start: 20080301
  18. PREDNISOLONE [Concomitant]
     Indication: STEROID THERAPY
     Route: 048
     Dates: start: 20080505, end: 20080509

REACTIONS (4)
  - NAUSEA [None]
  - URINARY TRACT INFECTION [None]
  - BLISTER [None]
  - ERYTHEMA [None]
